FAERS Safety Report 6891462 (Version 25)
Quarter: 2014Q1

REPORT INFORMATION
  Report Type: Spontaneous
  Country: US (occurrence: US)
  Receive Date: 20090126
  Receipt Date: 20140131
  Transmission Date: 20141002
  Serious: Yes (Other)
  Sender: FDA-Public Use
  Company Number: PHEH2009US00900

PATIENT
  Age: 54 Year
  Sex: Male
  Weight: 91.79 kg

DRUGS (38)
  1. ZOMETA [Suspect]
     Indication: PLASMA CELL MYELOMA
     Dosage: 4 MG, QMO
     Route: 042
     Dates: start: 200305, end: 200611
  2. CHEMOTHERAPEUTICS NOS [Concomitant]
     Dates: start: 200604
  3. THALIDOMIDE [Concomitant]
     Dosage: 200 MG, QD
     Dates: start: 200304, end: 200606
  4. ATENOLOL [Concomitant]
     Dosage: 25 MG,
     Dates: start: 200004
  5. LIPITOR [Concomitant]
     Dates: start: 2006
  6. PRAVACHOL [Concomitant]
     Dates: start: 2000, end: 2006
  7. MORPHINE [Concomitant]
     Dates: start: 200701, end: 200701
  8. OMEPRAZOLE [Concomitant]
  9. TRIMETHOPRIM [Concomitant]
     Indication: ANTIBIOTIC PROPHYLAXIS
     Dosage: 1 DF, BID
     Dates: start: 20070622
  10. WARFARIN [Concomitant]
     Indication: ANTICOAGULANT THERAPY
     Dosage: 2 MG, QHS
     Dates: start: 20070608
  11. VITAMINS NOS [Concomitant]
     Dates: start: 2003
  12. REVLIMID [Concomitant]
     Indication: PLASMA CELL MYELOMA
     Dosage: 25 MG, QW3
     Dates: start: 200607
  13. VITAMIN B6 [Concomitant]
     Indication: NEUROPATHY PERIPHERAL
     Dates: start: 200605
  14. OXYCODONE [Concomitant]
     Indication: PAIN
     Dates: start: 200701
  15. OXYCODONE [Concomitant]
     Dosage: 40 MG, PRN
     Dates: start: 200701
  16. DEXAMETHASONE [Concomitant]
     Indication: PLASMA CELL MYELOMA
     Dosage: 4 MG, 10 TABS Q SAT
     Dates: start: 20070607
  17. CLINDAMYCIN [Concomitant]
     Dosage: 300 MG, TID
     Dates: start: 200612
  18. ASA [Concomitant]
     Indication: ANTICOAGULANT THERAPY
     Dosage: 325 MG,
     Dates: start: 200011
  19. PLAVIX [Concomitant]
  20. XANAX [Concomitant]
  21. DECADRON [Concomitant]
  22. COUMADIN [Concomitant]
  23. COMPAZINE [Concomitant]
  24. PERCOCET [Concomitant]
  25. NAPROSYN [Concomitant]
  26. NITROGLYCERIN [Concomitant]
  27. PNEUMOVAX [Concomitant]
  28. ADVIL [Concomitant]
  29. DICLOFENAC [Concomitant]
  30. PREVACID [Concomitant]
  31. LYRICA [Concomitant]
  32. VELCADE [Concomitant]
  33. ELAVIL [Concomitant]
  34. LOVASTATIN [Concomitant]
  35. TYLENOL [Concomitant]
  36. LASIX [Concomitant]
  37. PENICILLIN [Concomitant]
  38. CYCLOPHOSPHAMIDE [Concomitant]

REACTIONS (111)
  - Cataract [Unknown]
  - Osteonecrosis of jaw [Unknown]
  - Infection [Unknown]
  - Bone disorder [Unknown]
  - Tooth loss [Unknown]
  - Pain [Unknown]
  - Swelling [Unknown]
  - Bloody discharge [Unknown]
  - Wound [Unknown]
  - Swelling face [Unknown]
  - Injury [Unknown]
  - Pain in jaw [Unknown]
  - Anxiety [Unknown]
  - Osteomyelitis [Unknown]
  - Anhedonia [Unknown]
  - Haemorrhoids [Unknown]
  - Rectal haemorrhage [Unknown]
  - Paraesthesia [Unknown]
  - Hypoaesthesia [Unknown]
  - Osteolysis [Unknown]
  - Bursitis [Unknown]
  - Fasciitis [Unknown]
  - Oedema [Unknown]
  - Leukopenia [Unknown]
  - Arterial disorder [Unknown]
  - Blood pressure increased [Unknown]
  - Anaemia [Unknown]
  - Bone pain [Unknown]
  - Hypercholesterolaemia [Unknown]
  - Gastrooesophageal reflux disease [Unknown]
  - Dyspepsia [Unknown]
  - Mastication disorder [Unknown]
  - Dysphagia [Unknown]
  - Neck pain [Unknown]
  - Abnormal behaviour [Unknown]
  - Depressed mood [Unknown]
  - Sleep disorder [Unknown]
  - Abulia [Unknown]
  - Bone loss [Unknown]
  - Tendonitis [Unknown]
  - Phlebitis [Unknown]
  - Thrombophlebitis [Unknown]
  - Atrial fibrillation [Unknown]
  - Cellulitis [Unknown]
  - Abscess limb [Unknown]
  - Epicondylitis [Unknown]
  - Sinus bradycardia [Unknown]
  - Lung infection [Unknown]
  - Lung infiltration [Unknown]
  - Pulmonary mass [Unknown]
  - Lung disorder [Unknown]
  - Dilatation ventricular [Unknown]
  - Renal failure [Unknown]
  - Dyspnoea [Unknown]
  - Osteosclerosis [Unknown]
  - Exostosis of jaw [Unknown]
  - Discomfort [Unknown]
  - Excessive granulation tissue [Unknown]
  - Bone swelling [Unknown]
  - Primary sequestrum [Unknown]
  - Tongue ulceration [Unknown]
  - Mouth ulceration [Unknown]
  - Gingival recession [Unknown]
  - Erythema [Unknown]
  - Fistula [Unknown]
  - Exposed bone in jaw [Unknown]
  - Purulent discharge [Unknown]
  - Oedema peripheral [Unknown]
  - Myocardial ischaemia [Unknown]
  - Plasma cell myeloma [Unknown]
  - Malignant neoplasm progression [Unknown]
  - Conjunctival haemorrhage [Unknown]
  - Arthritis [Unknown]
  - Crepitations [Unknown]
  - Perineal abscess [Unknown]
  - Perineal infection [Unknown]
  - Skin infection [Unknown]
  - Groin abscess [Unknown]
  - Pain in extremity [Unknown]
  - Local swelling [Unknown]
  - Dry mouth [Unknown]
  - Pulpitis dental [Unknown]
  - Mucosal inflammation [Unknown]
  - Periodontitis [Unknown]
  - Tooth fracture [Unknown]
  - Dental caries [Unknown]
  - Periodontal disease [Unknown]
  - Gingivitis [Unknown]
  - Fall [Unknown]
  - Pleuritic pain [Unknown]
  - Chest pain [Unknown]
  - Muscle spasms [Unknown]
  - Wheezing [Unknown]
  - Musculoskeletal chest pain [Unknown]
  - Transient ischaemic attack [Unknown]
  - Cerebral infarction [Unknown]
  - Deep vein thrombosis [Recovered/Resolved]
  - Neuropathy peripheral [Recovered/Resolved]
  - Pulmonary embolism [Recovered/Resolved]
  - Hyperlipidaemia [Recovered/Resolved]
  - Joint swelling [Unknown]
  - Sinus congestion [Unknown]
  - Osteoarthritis [Unknown]
  - Fatigue [Unknown]
  - Cough [Unknown]
  - Oropharyngeal pain [Unknown]
  - Testicular pain [Unknown]
  - Malaise [Unknown]
  - Bone lesion [Unknown]
  - Hyperaesthesia [Unknown]
  - Confusional state [Unknown]
